FAERS Safety Report 8158671-2 (Version None)
Quarter: 2012Q1

REPORT INFORMATION
  Report Type: 
  Country: None (occurrence: None)
  Receive Date: 20120217
  Receipt Date: 20120213
  Transmission Date: 20120608
  Serious: Yes (Death)
  Sender: FDA-Public Use
  Company Number: 2011SP010525

PATIENT
  Age: 62 Year
  Sex: Female
  Weight: 53 kg

DRUGS (19)
  1. NICARDIPINE HCL [Concomitant]
  2. PURSENNID (SENNOSIDE) [Concomitant]
  3. FAMOTIDINE [Concomitant]
  4. MOTILIUM [Concomitant]
  5. DEPAKENE [Concomitant]
  6. MAGNESIUM OXIDE [Concomitant]
  7. LASIX [Concomitant]
  8. SULFAMETHOXAZOLE AND TRIMETHOPRIM [Concomitant]
  9. LEVOFLOXACIN [Concomitant]
  10. SOFRATULLE [Concomitant]
  11. TEMODAL [Suspect]
     Indication: ANAPLASTIC ASTROCYTOMA
     Dosage: 150 MG/M2; QD; PO
     Route: 048
     Dates: start: 20061227, end: 20061231
  12. TEMODAL [Suspect]
     Indication: ANAPLASTIC ASTROCYTOMA
     Dosage: 150 MG/M2; QD; PO
     Route: 048
     Dates: start: 20070503, end: 20070507
  13. TEMODAL [Suspect]
     Indication: ANAPLASTIC ASTROCYTOMA
     Dosage: 150 MG/M2; QD; PO
     Route: 048
     Dates: start: 20070606, end: 20070610
  14. TEMODAL [Suspect]
     Indication: ANAPLASTIC ASTROCYTOMA
     Dosage: 150 MG/M2; QD; PO
     Route: 048
     Dates: start: 20070221, end: 20070225
  15. TEMODAL [Suspect]
     Indication: ANAPLASTIC ASTROCYTOMA
     Dosage: 150 MG/M2; QD; PO
     Route: 048
     Dates: start: 20070328, end: 20070401
  16. TEMODAL [Suspect]
     Indication: ANAPLASTIC ASTROCYTOMA
     Dosage: 150 MG/M2; QD; PO
     Route: 048
     Dates: start: 20070124, end: 20070128
  17. ACTONEL (SODIUM RISEDRONATE HYDRATE) [Concomitant]
  18. DECADRON [Concomitant]
  19. HYALEIN [Concomitant]

REACTIONS (2)
  - NEOPLASM PROGRESSION [None]
  - ANAPLASTIC ASTROCYTOMA [None]
